FAERS Safety Report 5612012-0 (Version None)
Quarter: 2008Q1

REPORT INFORMATION
  Report Type: 
  Country: None (occurrence: None)
  Receive Date: 20080130
  Receipt Date: 20080130
  Transmission Date: 20080703
  Serious: Yes (Disabling, Other)
  Sender: FDA-Public Use
  Company Number: None

PATIENT
  Sex: Male
  Weight: 80.7403 kg

DRUGS (1)
  1. BACLOFEN [Suspect]

REACTIONS (3)
  - CATHETER RELATED COMPLICATION [None]
  - DEVICE BREAKAGE [None]
  - MUSCLE SPASMS [None]
